FAERS Safety Report 6887495-9 (Version None)
Quarter: 2010Q3

REPORT INFORMATION
  Report Type: 
  Country: None (occurrence: None)
  Receive Date: 20100730
  Receipt Date: 20100721
  Transmission Date: 20110219
  Serious: Yes (Disabling)
  Sender: FDA-Public Use
  Company Number: CA-BAYER-201025253NA

PATIENT
  Age: 20 Year
  Sex: Female
  Weight: 66 kg

DRUGS (1)
  1. YASMIN [Suspect]
     Indication: PRODUCT USED FOR UNKNOWN INDICATION
     Route: 048
     Dates: start: 20090120, end: 20091020

REACTIONS (5)
  - BLINDNESS UNILATERAL [None]
  - MIGRAINE [None]
  - MIGRAINE WITH AURA [None]
  - PAIN [None]
  - VOMITING [None]
